FAERS Safety Report 17066845 (Version 2)
Quarter: 2020Q1

REPORT INFORMATION
  Report Type: Spontaneous
  Country: US (occurrence: US)
  Receive Date: 20191122
  Receipt Date: 20200303
  Transmission Date: 20200409
  Serious: Yes (Other)
  Sender: FDA-Public Use
  Company Number: US-BIODELIVERY SCIENCES INTERNATIONAL-2019BDSI0882

PATIENT
  Sex: Male
  Weight: 59.93 kg

DRUGS (2)
  1. FINASTERIDE. [Concomitant]
     Active Substance: FINASTERIDE
     Indication: PROSTATIC DISORDER
     Route: 048
  2. BUPRENORPHINE. [Suspect]
     Active Substance: BUPRENORPHINE
     Indication: RESTLESS LEGS SYNDROME
     Route: 002
     Dates: start: 201910

REACTIONS (13)
  - Insomnia [Not Recovered/Not Resolved]
  - Product administration error [Recovered/Resolved]
  - Therapeutic response decreased [Unknown]
  - Product use complaint [Unknown]
  - Off label use [Not Recovered/Not Resolved]
  - Fatigue [Not Recovered/Not Resolved]
  - Product adhesion issue [Unknown]
  - Feeling abnormal [Not Recovered/Not Resolved]
  - Drug withdrawal syndrome [Not Recovered/Not Resolved]
  - Oral administration complication [Unknown]
  - Abdominal discomfort [Recovered/Resolved]
  - Drug effective for unapproved indication [Not Recovered/Not Resolved]
  - Asthenia [Not Recovered/Not Resolved]

NARRATIVE: CASE EVENT DATE: 2019
